FAERS Safety Report 16012772 (Version 1)
Quarter: 2019Q1

REPORT INFORMATION
  Report Type: Spontaneous
  Country: CN (occurrence: CN)
  Receive Date: 20190227
  Receipt Date: 20190227
  Transmission Date: 20190418
  Serious: No
  Sender: FDA-Public Use
  Company Number: CN-B. BRAUN MEDICAL INC.-2063268

PATIENT
  Age: 59 Year
  Sex: Male
  Weight: 66 kg

DRUGS (1)
  1. NUTRILIPID I.V. FAT EMULSION [Suspect]
     Active Substance: SOYBEAN OIL
     Indication: NUTRITIONAL SUPPLEMENTATION

REACTIONS (2)
  - Chest discomfort [None]
  - Dizziness [None]
